FAERS Safety Report 7905784-3 (Version None)
Quarter: 2011Q4

REPORT INFORMATION
  Report Type: 
  Country: None (occurrence: None)
  Receive Date: 20111110
  Receipt Date: 20111031
  Transmission Date: 20120403
  Serious: Yes (Other)
  Sender: FDA-Public Use
  Company Number: US-JNJFOC-20111013503

PATIENT
  Sex: Female
  Weight: 100.7 kg

DRUGS (1)
  1. REMICADE [Suspect]
     Indication: CROHN'S DISEASE
     Route: 042
     Dates: start: 20080101, end: 20111001

REACTIONS (4)
  - PAIN [None]
  - LIVER INJURY [None]
  - OVARIAN DISORDER [None]
  - CHOLELITHIASIS [None]
